FAERS Safety Report 4661196-X (Version None)
Quarter: 2005Q2

REPORT INFORMATION
  Report Type: 
  Country: None (occurrence: None)
  Receive Date: 20050513
  Receipt Date: 20050509
  Transmission Date: 20051028
  Serious: Yes (Other)
  Sender: FDA-Public Use
  Company Number: DE-BOEHRINGER INGELHEIM PHARMACEUTICALS, INC.-2005-DE-01764DE

PATIENT
  Sex: Female
  Weight: 86 kg

DRUGS (1)
  1. MOBEC 15 MG TABLETTEN [Suspect]
     Route: 048

REACTIONS (5)
  - ALCOHOLISM [None]
  - DRUG ABUSER [None]
  - MALAISE [None]
  - OVERDOSE [None]
  - SUICIDE ATTEMPT [None]
